FAERS Safety Report 7042009-8 (Version None)
Quarter: 2010Q4

REPORT INFORMATION
  Report Type: 
  Country: None (occurrence: None)
  Receive Date: 20101013
  Receipt Date: 20091014
  Transmission Date: 20110411
  Serious: No
  Sender: FDA-Public Use
  Company Number: US-ASTRAZENECA-2009SE20224

PATIENT
  Age: 61 Year
  Sex: Female
  Weight: 63.5 kg

DRUGS (4)
  1. SYMBICORT [Suspect]
     Indication: ASTHMA
     Dosage: 160/4.5 MCG BID
     Route: 055
  2. TRAZODONE HCL [Concomitant]
     Indication: INSOMNIA
     Route: 065
  3. DIOVAN [Concomitant]
     Indication: HYPERTENSION
     Route: 065
  4. METOPROLOL [Concomitant]
     Indication: HYPERTENSION
     Route: 048

REACTIONS (5)
  - ABDOMINAL DISTENSION [None]
  - BACK PAIN [None]
  - DIZZINESS [None]
  - FATIGUE [None]
  - PYREXIA [None]
